FAERS Safety Report 7237642-4 (Version None)
Quarter: 2011Q1

REPORT INFORMATION
  Report Type: 
  Country: None (occurrence: None)
  Receive Date: 20110121
  Receipt Date: 20110113
  Transmission Date: 20110831
  Serious: Yes (Other)
  Sender: FDA-Public Use
  Company Number: PHHY2010GB23052

PATIENT
  Sex: Female

DRUGS (4)
  1. EXJADE [Suspect]
     Dosage: 750 MG, QD
     Route: 048
  2. LACTULOSE [Concomitant]
     Dosage: UNK
  3. EXJADE [Suspect]
     Indication: IRON OVERLOAD
     Dosage: 650 MG, UNK
     Dates: start: 20080101, end: 20110101
  4. PENICILLIN V [Concomitant]
     Dosage: 250 MG, BID
     Route: 048

REACTIONS (6)
  - EATING DISORDER [None]
  - URINARY TRACT INFECTION [None]
  - VOMITING [None]
  - ABDOMINAL PAIN [None]
  - NAUSEA [None]
  - CONSTIPATION [None]
